FAERS Safety Report 6218169-5 (Version None)
Quarter: 2009Q2

REPORT INFORMATION
  Report Type: 
  Country: None (occurrence: None)
  Receive Date: 20090608
  Receipt Date: 20090602
  Transmission Date: 20091009
  Serious: Yes (Other)
  Sender: FDA-Public Use
  Company Number: US-ASTRAZENECA-2009UW14049

PATIENT
  Age: 53 Year
  Sex: Female
  Weight: 90.7 kg

DRUGS (12)
  1. ATACAND [Suspect]
     Route: 048
     Dates: start: 20010101
  2. PRILOSEC [Suspect]
     Route: 048
  3. BENADRYL [Concomitant]
     Route: 065
  4. TYLENOL (CAPLET) [Concomitant]
     Route: 065
  5. MAXZIDE [Concomitant]
     Dosage: 25/37 5 MG
     Route: 065
  6. CLARINEX [Concomitant]
     Route: 065
  7. SINGULAIR [Concomitant]
     Route: 065
  8. ASTELIN [Concomitant]
     Route: 045
  9. NASONEX [Concomitant]
     Route: 065
  10. TEMPOVATE [Concomitant]
     Indication: ECZEMA
     Route: 065
  11. EPIPEN [Concomitant]
     Route: 065
  12. SIMETHICONE [Concomitant]
     Route: 065

REACTIONS (6)
  - ANAL SPHINCTEROTOMY [None]
  - BLADDER REPAIR [None]
  - HAEMORRHOID OPERATION [None]
  - KNEE ARTHROPLASTY [None]
  - PERINEAL OPERATION [None]
  - RECTAL PROLAPSE REPAIR [None]
